FAERS Safety Report 6474580-9 (Version None)
Quarter: 2009Q4

REPORT INFORMATION
  Report Type: 
  Country: None (occurrence: None)
  Receive Date: 20091204
  Receipt Date: 20090205
  Transmission Date: 20100525
  Serious: Yes (Death)
  Sender: FDA-Public Use
  Company Number: US-ELI_LILLY_AND_COMPANY-US200901005350

PATIENT
  Sex: Female

DRUGS (18)
  1. ALIMTA [Suspect]
     Indication: NON-SMALL CELL LUNG CANCER
     Route: 042
     Dates: start: 20090120
  2. GEMZAR [Suspect]
     Indication: NON-SMALL CELL LUNG CANCER
     Route: 042
     Dates: start: 20081125
  3. AVASTIN [Concomitant]
     Indication: NON-SMALL CELL LUNG CANCER
     Dates: start: 20090120
  4. CARBOPLATIN [Concomitant]
     Indication: NON-SMALL CELL LUNG CANCER
     Dates: start: 20081125
  5. DEXAMETHASONE [Concomitant]
     Dosage: 3 MG, DAILY (1/D)
     Route: 042
  6. ALOXI [Concomitant]
     Route: 042
  7. ANTIEMETICS AND ANTINAUSEANTS [Concomitant]
  8. EPOGEN [Concomitant]
     Dosage: 40000 U, UNK
     Route: 042
  9. NEULASTA [Concomitant]
     Dosage: 6 MG, DAILY (1/D)
     Route: 042
  10. COUMADIN [Concomitant]
     Route: 048
  11. MORPHINE                           /00036301/ [Concomitant]
  12. PLETAL [Concomitant]
     Dosage: 100 MG, 2/D
     Route: 048
  13. OXYGEN [Concomitant]
  14. DILANTIN [Concomitant]
     Dosage: 200 MG, 2/D
     Route: 048
  15. COREG [Concomitant]
     Dosage: 25 MG, 2/D
     Route: 048
  16. CALCIUM /N/A/ [Concomitant]
     Route: 048
  17. SOLUTIONS FOR PARENTERAL NUTRITION [Concomitant]
  18. VITAMIN B-12 [Concomitant]
     Dosage: 1 MG, UNK
     Dates: start: 20090120

REACTIONS (4)
  - ANAEMIA [None]
  - BLOOD ALBUMIN ABNORMAL [None]
  - MALAISE [None]
  - MALIGNANT NEOPLASM PROGRESSION [None]
